FAERS Safety Report 7475321-9 (Version None)
Quarter: 2011Q2

REPORT INFORMATION
  Report Type: 
  Country: None (occurrence: None)
  Receive Date: 20110512
  Receipt Date: 20110429
  Transmission Date: 20111010
  Serious: Yes (Hospitalization, Other)
  Sender: FDA-Public Use
  Company Number: US-PFIZER INC-US-WYE-H10115309

PATIENT
  Sex: Female
  Weight: 45.4 kg

DRUGS (5)
  1. ENBREL [Suspect]
     Dosage: 50 MG, 1X/WK
     Route: 058
     Dates: start: 20050401, end: 20080401
  2. ULTRACET [Concomitant]
     Dosage: UNK
     Route: 065
     Dates: start: 20040101
  3. PREDNISONE [Suspect]
     Dosage: UNK
     Route: 048
     Dates: start: 20040101
  4. CELEBREX [Concomitant]
     Dosage: UNK
     Route: 065
     Dates: start: 20000101
  5. DEPO-MEDROL [Suspect]
     Dosage: UNK
     Route: 014
     Dates: start: 20041101

REACTIONS (10)
  - PULMONARY TUBERCULOSIS [None]
  - PNEUMOTHORAX [None]
  - EMPYEMA [None]
  - SPLENOMEGALY [None]
  - NEPHROLITHIASIS [None]
  - DISSEMINATED TUBERCULOSIS [None]
  - OSTEOMYELITIS [None]
  - ADNEXA UTERI MASS [None]
  - ABSCESS [None]
  - HYDRONEPHROSIS [None]
